FAERS Safety Report 21772897 (Version 1)
Quarter: 2022Q4

REPORT INFORMATION
  Report Type: Spontaneous
  Country: SE (occurrence: SE)
  Receive Date: 20221223
  Receipt Date: 20221223
  Transmission Date: 20230112
  Serious: Yes (Hospitalization)
  Sender: FDA-Public Use
  Company Number: None

PATIENT
  Age: 22 Year
  Sex: Male

DRUGS (6)
  1. MIRTAZAPINE [Suspect]
     Active Substance: MIRTAZAPINE
     Indication: Product used for unknown indication
     Dosage: UNIT DOSE : 60 MG, FREQUENCY TIME : 1 TOTAL
     Dates: start: 20210427, end: 20210427
  2. OLANZAPINE [Suspect]
     Active Substance: OLANZAPINE
     Indication: Product used for unknown indication
     Dosage: UNIT DOSE :80 MG, FREQUENCY TIME : 1 TOTAL
     Dates: start: 20210427, end: 20210427
  3. PROPIOMAZINE [Suspect]
     Active Substance: PROPIOMAZINE
     Indication: Product used for unknown indication
     Dosage: UNIT DOSE : 100 MG, FREQUENCY TIME : 1 TOTAL
     Dates: start: 20210427, end: 20210427
  4. LISDEXAMFETAMINE DIMESYLATE [Suspect]
     Active Substance: LISDEXAMFETAMINE DIMESYLATE
     Indication: Product used for unknown indication
     Dosage: UNIT DOSE : 400 MG, FREQUENCY TIME : 1 TOTAL
     Dates: start: 20210427, end: 20210427
  5. MELATONIN [Suspect]
     Active Substance: MELATONIN
     Indication: Product used for unknown indication
     Dosage: UNIT DOSE : 40 MG, FREQUENCY TIME : 1 TOTAL
     Dates: start: 20210427, end: 20210427
  6. TRIMEPRAZINE [Suspect]
     Active Substance: TRIMEPRAZINE
     Indication: Product used for unknown indication
     Dosage: UNIT DOSE : 160 MG, FREQUENCY TIME : 1 TOTAL
     Dates: start: 20210427, end: 20210427

REACTIONS (2)
  - Intentional self-injury [Unknown]
  - Intentional overdose [Unknown]

NARRATIVE: CASE EVENT DATE: 20210427
